FAERS Safety Report 14182623 (Version 1)
Quarter: 2017Q4

REPORT INFORMATION
  Report Type: Spontaneous
  Country: US (occurrence: US)
  Receive Date: 20171113
  Receipt Date: 20171113
  Transmission Date: 20180321
  Serious: No
  Sender: FDA-Public Use
  Company Number: US-APOTEX-2016AP014500

PATIENT
  Sex: Female
  Weight: 90 kg

DRUGS (14)
  1. ZYRTEC [Concomitant]
     Active Substance: CETIRIZINE HYDROCHLORIDE
     Indication: HYPERSENSITIVITY
     Dosage: 40 MG, QD
     Route: 048
     Dates: start: 1997
  2. ETODOLAC. [Concomitant]
     Active Substance: ETODOLAC
     Indication: PAIN
     Dosage: 1 DF, DAILY
     Route: 048
     Dates: end: 20160720
  3. ACYCLOVIR. [Suspect]
     Active Substance: ACYCLOVIR
     Dosage: 3-4 TABLETS DAILY, EVEN 5 A DAY
     Route: 048
  4. ORENCIA [Concomitant]
     Active Substance: ABATACEPT
     Indication: RHEUMATOID ARTHRITIS
     Dosage: 100 MG, UNK
     Route: 042
     Dates: start: 20160817, end: 20160817
  5. ENBREL [Concomitant]
     Active Substance: ETANERCEPT
     Indication: FIBROMYALGIA
  6. ACYCLOVIR. [Suspect]
     Active Substance: ACYCLOVIR
     Indication: GENITAL HERPES
     Dosage: 2-3 TABLETS DAILY
     Route: 048
  7. ORENCIA [Concomitant]
     Active Substance: ABATACEPT
     Indication: FIBROMYALGIA
  8. PANTOPRAZOLE [Concomitant]
     Active Substance: PANTOPRAZOLE
     Indication: GASTROOESOPHAGEAL REFLUX DISEASE
     Dosage: 40 MG, DAILY
     Route: 048
  9. ACETAMINOPHEN W/HYDROCODONE [Concomitant]
     Active Substance: ACETAMINOPHEN\HYDROCODONE
     Indication: INSOMNIA
  10. ENBREL [Concomitant]
     Active Substance: ETANERCEPT
     Indication: RHEUMATOID ARTHRITIS
     Dosage: 50 MG, Q.WK.
     Route: 065
     Dates: start: 201505, end: 20160812
  11. BABY ASPIRIN [Concomitant]
     Active Substance: ASPIRIN
     Indication: MIGRAINE
     Dosage: DAILY
     Route: 048
     Dates: start: 201508
  12. ACETAMINOPHEN W/HYDROCODONE [Concomitant]
     Active Substance: ACETAMINOPHEN\HYDROCODONE
     Indication: PAIN
     Dosage: 0.5 DF, PRN
     Route: 048
     Dates: start: 2003
  13. ACYCLOVIR                          /00587301/ [Concomitant]
     Active Substance: ACYCLOVIR
     Indication: GENITAL HERPES
     Dosage: UNK
     Route: 065
  14. TOPRAL                             /00586501/ [Concomitant]
     Indication: PRODUCT USED FOR UNKNOWN INDICATION
     Dosage: 25 MG, QD
     Route: 048
     Dates: start: 2003

REACTIONS (3)
  - Drug ineffective [Recovering/Resolving]
  - Product substitution issue [Unknown]
  - Inappropriate schedule of drug administration [Unknown]
